FAERS Safety Report 9511658 (Version 1)
Quarter: 2013Q3

REPORT INFORMATION
  Report Type: Report from Study
  Country: DE (occurrence: DE)
  Receive Date: 20130910
  Receipt Date: 20130910
  Transmission Date: 20140515
  Serious: Yes (Other)
  Sender: FDA-Public Use
  Company Number: DE-ASTELLAS-2013EU007574

PATIENT
  Sex: 0

DRUGS (9)
  1. TACROLIMUS SYSTEMIC [Suspect]
     Indication: IMMUNOSUPPRESSION
     Dosage: 0.03 MG/KG, BID
     Route: 065
  2. SIROLIMUS [Concomitant]
     Indication: IMMUNOSUPPRESSION
     Dosage: 15 MG, UNKNOWN/D
     Route: 048
  3. SIROLIMUS [Concomitant]
     Dosage: 5 MG, UNKNOWN/D
     Route: 048
  4. METHYLPREDNISOLONE [Concomitant]
     Indication: IMMUNOSUPPRESSION
     Dosage: 500 MG, UNKNOWN/D
     Route: 042
  5. METHYLPREDNISOLONE [Concomitant]
     Dosage: 125 MG, UNKNOWN/D
     Route: 042
  6. PREDNISONE [Concomitant]
     Indication: IMMUNOSUPPRESSION
     Dosage: 20 MG/DAY, UNKNOWN/D
     Route: 048
  7. PREDNISONE [Concomitant]
     Dosage: 15 MG/DAY, UNKNOWN/D
     Route: 048
  8. PREDNISONE [Concomitant]
     Dosage: 10 MG/DAY, UNKNOWN/D
     Route: 048
  9. PREDNISONE [Concomitant]
     Dosage: 5 MG/DAY, UNKNOWN/D
     Route: 048

REACTIONS (3)
  - Drug ineffective [Unknown]
  - Kidney transplant rejection [Unknown]
  - Graft loss [Unknown]
